FAERS Safety Report 11011110 (Version 1)
Quarter: 2015Q2

REPORT INFORMATION
  Report Type: Spontaneous
  Country: US (occurrence: US)
  Receive Date: 20150410
  Receipt Date: 20150410
  Transmission Date: 20150821
  Serious: No
  Sender: FDA-Public Use
  Company Number: US-BAYER-2015-099313

PATIENT
  Age: 65 Year
  Sex: Female
  Weight: 79.37 kg

DRUGS (1)
  1. ALEVE PM [Suspect]
     Active Substance: DIPHENHYDRAMINE HYDROCHLORIDE\NAPROXEN SODIUM
     Indication: ARTHRITIS
     Dosage: 1 DF, PRN
     Route: 048
     Dates: start: 20150325, end: 20150329

REACTIONS (3)
  - Drug ineffective [None]
  - Medication error [None]
  - Drug ineffective [None]

NARRATIVE: CASE EVENT DATE: 20150326
